FAERS Safety Report 25325197 (Version 3)
Quarter: 2025Q3

REPORT INFORMATION
  Report Type: Spontaneous
  Country: US (occurrence: US)
  Receive Date: 20250516
  Receipt Date: 20250724
  Transmission Date: 20251020
  Serious: No
  Sender: BAYER HEALTHCARE PHARMACEUTICALS INC.
  Company Number: US-BAYER-2025A065229

PATIENT
  Age: 50 Year
  Sex: Female

DRUGS (1)
  1. CLIMARA PRO [Suspect]
     Active Substance: ESTRADIOL\LEVONORGESTREL
     Indication: Hormone therapy
     Route: 062
     Dates: start: 20250510, end: 20250513

REACTIONS (4)
  - Incorrect dose administered [None]
  - Wrong technique in product usage process [None]
  - Product physical issue [None]
  - Device adhesion issue [None]
